FAERS Safety Report 13910546 (Version 1)
Quarter: 2017Q3

REPORT INFORMATION
  Report Type: Spontaneous
  Country: US (occurrence: US)
  Receive Date: 20170826
  Receipt Date: 20170826
  Transmission Date: 20171127
  Serious: Yes (Disabling, Other)
  Sender: FDA-Public Use
  Company Number: None

PATIENT
  Age: 62 Year
  Sex: Male
  Weight: 85.5 kg

DRUGS (9)
  1. BACOPA [Concomitant]
  2. CRESTOR [Concomitant]
     Active Substance: ROSUVASTATIN CALCIUM
  3. NEXXIUM [Concomitant]
  4. GABAPENTIN 800 MG [Suspect]
     Active Substance: GABAPENTIN
     Indication: BACK INJURY
     Route: 048
  5. 5HTP [Concomitant]
  6. NAC [Concomitant]
  7. CORDYCEPS [Concomitant]
     Active Substance: HERBALS
  8. OMEGA3 [Concomitant]
  9. SENIOR ADULT MULTI-VITAMIN [Concomitant]

REACTIONS (3)
  - Memory impairment [None]
  - Aphasia [None]
  - Thinking abnormal [None]

NARRATIVE: CASE EVENT DATE: 20170101
